FAERS Safety Report 7256136-3 (Version None)
Quarter: 2011Q1

REPORT INFORMATION
  Report Type: 
  Country: None (occurrence: None)
  Receive Date: 20110129
  Receipt Date: 20100608
  Transmission Date: 20110831
  Serious: No
  Sender: FDA-Public Use
  Company Number: US-ABBOTT-10P-163-0645754-00

PATIENT
  Age: 55 Year
  Sex: Female

DRUGS (9)
  1. HYDROCHLOROTHIAZIDE [Concomitant]
     Indication: HYPERTENSION
     Dosage: 10/2.5MG DAILY
     Route: 048
  2. ULTIMATE WOMAN MULTIVITAMIN [Concomitant]
     Indication: PRODUCT USED FOR UNKNOWN INDICATION
  3. HUMIRA [Suspect]
  4. METHOTREXATE [Concomitant]
     Indication: PSORIATIC ARTHROPATHY
     Route: 048
     Dates: end: 20100505
  5. PRAVASTATIN [Concomitant]
     Indication: HYPERLIPIDAEMIA
     Route: 048
  6. FOLIC ACID [Concomitant]
     Indication: FOLATE DEFICIENCY
     Route: 048
  7. HUMIRA [Suspect]
     Indication: PSORIATIC ARTHROPATHY
     Dates: start: 20100301, end: 20100512
  8. GARLIC [Concomitant]
     Indication: HYPERLIPIDAEMIA
     Route: 048
  9. VITAMIN B COMPLEX CAP [Concomitant]
     Indication: ASTHENIA

REACTIONS (5)
  - PRURITUS [None]
  - INJECTION SITE PAIN [None]
  - EAR INFECTION [None]
  - INJECTION SITE HAEMORRHAGE [None]
  - PUSTULAR PSORIASIS [None]
